FAERS Safety Report 5091660-3 (Version None)
Quarter: 2006Q3

REPORT INFORMATION
  Report Type: 
  Country: None (occurrence: None)
  Receive Date: 20060829
  Receipt Date: 20060818
  Transmission Date: 20061208
  Serious: Yes (Hospitalization)
  Sender: FDA-Public Use
  Company Number: PHEH2006US10626

PATIENT
  Age: 44 Year
  Sex: Female
  Weight: 82.086 kg

DRUGS (6)
  1. EXJADE [Suspect]
     Dosage: UNK, UNK
     Route: 048
     Dates: start: 20060301
  2. EXJADE [Suspect]
     Dosage: 500 MG, QD
     Route: 048
  3. EXJADE [Suspect]
     Dosage: 1500 MG, UNK
     Route: 048
     Dates: start: 20060801, end: 20060815
  4. LISINOPRIL [Concomitant]
     Dosage: UNK, UNK
     Dates: start: 20060401, end: 20060815
  5. ENBREL [Concomitant]
     Indication: POLYARTHRITIS
     Dates: start: 20060601, end: 20060815
  6. FUROSEMIDE [Concomitant]
     Indication: OEDEMA
     Dates: start: 20030101, end: 20060815

REACTIONS (10)
  - ANOREXIA [None]
  - ASTHENIA [None]
  - BLOOD CREATININE INCREASED [None]
  - BLOOD POTASSIUM INCREASED [None]
  - BLOOD UREA INCREASED [None]
  - DEHYDRATION [None]
  - NAUSEA [None]
  - RENAL FAILURE ACUTE [None]
  - URINARY TRACT INFECTION [None]
  - URINE OUTPUT DECREASED [None]
